FAERS Safety Report 6934953-4 (Version None)
Quarter: 2010Q3

REPORT INFORMATION
  Report Type: 
  Country: None (occurrence: None)
  Receive Date: 20100821
  Receipt Date: 20100812
  Transmission Date: 20110219
  Serious: Yes (Other)
  Sender: FDA-Public Use
  Company Number: CHPA2010US13053

PATIENT
  Sex: Male

DRUGS (3)
  1. 4 WAY MENTHOLATED NASAL SPRAY (NCH) [Suspect]
     Indication: NASAL CONGESTION
     Dosage: UNK, UNK
     Route: 045
  2. 4 WAY MENTHOLATED NASAL SPRAY (NCH) [Suspect]
     Dosage: UNK, UNK
     Route: 045
  3. METHADONE HCL [Concomitant]
     Indication: MUSCULOSKELETAL PAIN
     Dosage: UNK, UNK

REACTIONS (2)
  - DRUG DEPENDENCE [None]
  - INTENTIONAL DRUG MISUSE [None]
